FAERS Safety Report 13202303 (Version 2)
Quarter: 2017Q1

REPORT INFORMATION
  Report Type: Spontaneous
  Country: US (occurrence: US)
  Receive Date: 20170209
  Receipt Date: 20170227
  Transmission Date: 20170428
  Serious: No
  Sender: FDA-Public Use
  Company Number: US-PFIZER INC-2017052511

PATIENT
  Age: 75 Year
  Sex: Male

DRUGS (1)
  1. NEURONTIN [Suspect]
     Active Substance: GABAPENTIN
     Indication: NEUROPATHY PERIPHERAL
     Dosage: 900 MG, 1X/DAY BEDTIME; ON DAY FIVE HE TOOK IT IN THE MORNING

REACTIONS (3)
  - Tremor [Unknown]
  - Intentional product misuse [Recovered/Resolved]
  - Product use issue [Unknown]
